FAERS Safety Report 24984240 (Version 1)
Quarter: 2025Q1

REPORT INFORMATION
  Report Type: Other
  Country: CA (occurrence: CA)
  Receive Date: 20250219
  Receipt Date: 20250219
  Transmission Date: 20250408
  Serious: Yes (Life-Threatening, Other)
  Sender: APOTEX
  Company Number: CA-APOTEX-2025AP002024

PATIENT
  Age: 66 Year
  Sex: Male
  Weight: 98 kg

DRUGS (13)
  1. LENALIDOMIDE [Suspect]
     Active Substance: LENALIDOMIDE
     Indication: Routine health maintenance
     Dosage: 5 MILLIGRAM, QD
     Route: 048
  2. LENALIDOMIDE [Suspect]
     Active Substance: LENALIDOMIDE
     Indication: Plasma cell myeloma
  3. ACYCLOVIR [Concomitant]
     Active Substance: ACYCLOVIR
     Indication: Product used for unknown indication
     Route: 065
  4. COENZYME Q10 [Concomitant]
     Active Substance: DIETARY SUPPLEMENT\UBIDECARENONE
     Indication: Product used for unknown indication
     Route: 065
  5. EYLEA [Concomitant]
     Active Substance: AFLIBERCEPT
     Indication: Product used for unknown indication
     Route: 065
  6. DAPAGLIFLOZIN [Concomitant]
     Active Substance: DAPAGLIFLOZIN
     Indication: Product used for unknown indication
     Route: 065
  7. LUTEIN [Concomitant]
     Active Substance: LUTEIN
     Indication: Product used for unknown indication
     Route: 065
  8. MAGNESIUM [Concomitant]
     Active Substance: MAGNESIUM
     Indication: Product used for unknown indication
     Route: 065
  9. VITAMINS NOS [Concomitant]
     Active Substance: VITAMINS
     Indication: Product used for unknown indication
     Route: 065
  10. .ALPHA.-TOCOPHEROL ACETATE, D-\EVENING PRIMROSE OIL\FISH OIL [Concomitant]
     Active Substance: .ALPHA.-TOCOPHEROL ACETATE, D-\EVENING PRIMROSE OIL\FISH OIL
     Indication: Product used for unknown indication
     Route: 065
  11. PERINDOPRIL [Concomitant]
     Active Substance: PERINDOPRIL
     Indication: Product used for unknown indication
     Route: 065
  12. POTASSIUM [Concomitant]
     Active Substance: POTASSIUM
     Indication: Product used for unknown indication
     Route: 065
  13. VITAMIN D NOS [Concomitant]
     Active Substance: CHOLECALCIFEROL\ERGOCALCIFEROL
     Indication: Product used for unknown indication
     Route: 065

REACTIONS (3)
  - Rectal adenocarcinoma [Not Recovered/Not Resolved]
  - Intestinal obstruction [Not Recovered/Not Resolved]
  - Constipation [Not Recovered/Not Resolved]
